FAERS Safety Report 5158499-1 (Version None)
Quarter: 2006Q4

REPORT INFORMATION
  Report Type: 
  Country: None (occurrence: None)
  Receive Date: 20061117
  Receipt Date: 20061109
  Transmission Date: 20070319
  Serious: Yes (Life-Threatening, Hospitalization)
  Sender: FDA-Public Use
  Company Number: FRWYE269926AUG03

PATIENT
  Age: 60 Year
  Sex: Male

DRUGS (5)
  1. RAPAMUNE [Suspect]
     Indication: PROPHYLAXIS AGAINST TRANSPLANT REJECTION
     Dosage: 10 MG 1X PER 1 DAY
     Route: 048
     Dates: start: 20030812, end: 20030818
  2. CALCIPARINE [Suspect]
     Dosage: 0.45 ML DAILY
     Route: 058
     Dates: start: 20030812
  3. CELLCEPT [Concomitant]
  4. PREDNISOLONE [Concomitant]
  5. OMEPRAZOLE [Concomitant]

REACTIONS (2)
  - RENAL HAEMORRHAGE [None]
  - SHOCK HAEMORRHAGIC [None]
